FAERS Safety Report 6014191-2 (Version None)
Quarter: 2008Q4

REPORT INFORMATION
  Report Type: 
  Country: None (occurrence: None)
  Receive Date: 20081219
  Receipt Date: 20080717
  Transmission Date: 20090506
  Serious: No
  Sender: FDA-Public Use
  Company Number: A0708116A

PATIENT
  Age: 76 Year
  Sex: Male
  Weight: 100 kg

DRUGS (4)
  1. AVODART [Suspect]
     Indication: BENIGN PROSTATIC HYPERPLASIA
     Dosage: .5MG PER DAY
     Route: 048
     Dates: end: 20080127
  2. FLOMAX [Concomitant]
     Dosage: .4MG TWICE PER DAY
     Route: 048
  3. PRILOSEC [Concomitant]
     Dosage: 20MG TWICE PER DAY
     Route: 048
  4. NORVASC [Concomitant]
     Dosage: .5MG PER DAY
     Route: 048

REACTIONS (4)
  - BREAST ENLARGEMENT [None]
  - BREAST TENDERNESS [None]
  - DISCOMFORT [None]
  - HEADACHE [None]
